FAERS Safety Report 4363764-1 (Version None)
Quarter: 2004Q2

REPORT INFORMATION
  Report Type: 
  Country: None (occurrence: None)
  Receive Date: 20040517
  Receipt Date: 20040226
  Transmission Date: 20050107
  Serious: No
  Sender: FDA-Public Use
  Company Number: S04-USA-00981-01

PATIENT
  Age: 77 Year
  Sex: Female

DRUGS (9)
  1. NAMENDA [Suspect]
     Indication: DEMENTIA ALZHEIMER'S TYPE
     Dosage: 5 MG QD PO
     Route: 048
     Dates: start: 20040213, end: 20040214
  2. ARICEPT [Concomitant]
  3. NEURONTIN [Concomitant]
  4. KLOR-CON [Concomitant]
  5. DETROL [Concomitant]
  6. GLYBURIDE [Concomitant]
  7. CARDIZEM [Concomitant]
  8. MULTIVITAMIN [Concomitant]
  9. ZANTAC [Concomitant]

REACTIONS (2)
  - ACCIDENTAL OVERDOSE [None]
  - NEUROPATHY [None]
